FAERS Safety Report 7349786-7 (Version None)
Quarter: 2011Q1

REPORT INFORMATION
  Report Type: 
  Country: None (occurrence: None)
  Receive Date: 20110314
  Receipt Date: 20110304
  Transmission Date: 20110831
  Serious: Yes (Death)
  Sender: FDA-Public Use
  Company Number: IT-SANOFI-AVENTIS-2011SA013462

PATIENT
  Sex: Male

DRUGS (1)
  1. MULTAQ [Suspect]

REACTIONS (2)
  - ASTHENIA [None]
  - LIVER INJURY [None]
